FAERS Safety Report 21164465 (Version 2)
Quarter: 2022Q3

REPORT INFORMATION
  Report Type: Spontaneous
  Country: TR (occurrence: TR)
  Receive Date: 20220803
  Receipt Date: 20220927
  Transmission Date: 20221026
  Serious: Yes (Hospitalization)
  Sender: FDA-Public Use
  Company Number: TR-SA-2022SA298530

PATIENT
  Age: 67 Year
  Sex: Female

DRUGS (1)
  1. ENOXAPARIN SODIUM [Suspect]
     Active Substance: ENOXAPARIN SODIUM
     Indication: Mitral valve replacement
     Dosage: UNK

REACTIONS (4)
  - Idiosyncratic drug reaction [Recovered/Resolved]
  - Hepatic mass [Recovered/Resolved]
  - Granuloma [Recovered/Resolved]
  - Skin ulcer [Recovered/Resolved]
